FAERS Safety Report 7415939-2 (Version None)
Quarter: 2011Q2

REPORT INFORMATION
  Report Type: 
  Country: None (occurrence: None)
  Receive Date: 20110414
  Receipt Date: 20110404
  Transmission Date: 20111010
  Serious: Yes (Other)
  Sender: FDA-Public Use
  Company Number: PHHY2011US28188

PATIENT
  Age: 19 Year
  Sex: Female

DRUGS (4)
  1. METHIMAZOLE [Suspect]
     Dosage: UNK UKN, UNK
  2. METHIMAZOLE [Suspect]
     Indication: BASEDOW'S DISEASE
     Dosage: 40 MG ONCE DAILY
  3. PROPRANOLOL [Suspect]
     Dosage: 20 MG THREE TIMES DAILY
  4. AMPHETAMINE [Suspect]
     Dosage: UNK UKN, UNK

REACTIONS (4)
  - OLIGOHYDRAMNIOS [None]
  - AMNIORRHOEA [None]
  - THYROID FUNCTION TEST ABNORMAL [None]
  - DRUG EXPOSURE DURING PREGNANCY [None]
